FAERS Safety Report 9878771 (Version 2)
Quarter: 2014Q1

REPORT INFORMATION
  Report Type: Spontaneous
  Country: US (occurrence: US)
  Receive Date: 20140206
  Receipt Date: 20140227
  Transmission Date: 20141002
  Serious: Yes (Hospitalization, Other)
  Sender: FDA-Public Use
  Company Number: US-GLAXOSMITHKLINE-A1059265A

PATIENT
  Age: 69 Year
  Sex: Female

DRUGS (2)
  1. TYKERB [Suspect]
     Indication: BREAST CANCER
     Dosage: 1250MG PER DAY
     Route: 048
     Dates: start: 20120402
  2. VENLAFAXINE [Concomitant]

REACTIONS (4)
  - Cough [Recovered/Resolved]
  - Pain [Recovered/Resolved]
  - Asthma [Recovered/Resolved]
  - Upper respiratory tract infection [Recovered/Resolved]
